FAERS Safety Report 17890490 (Version 3)
Quarter: 2020Q3

REPORT INFORMATION
  Report Type: Spontaneous
  Country: JP (occurrence: JP)
  Receive Date: 20200612
  Receipt Date: 20200804
  Transmission Date: 20201103
  Serious: No
  Sender: FDA-Public Use
  Company Number: JP-BAYER-2020-110519

PATIENT
  Age: 20 Year
  Sex: Female

DRUGS (2)
  1. YAZ [Suspect]
     Active Substance: DROSPIRENONE\ETHINYL ESTRADIOL
     Indication: AMENORRHOEA
     Dosage: 1 DF, QD
     Route: 048
     Dates: start: 20200424, end: 20200608
  2. DOGMATYL [Concomitant]
     Active Substance: SULPIRIDE
     Route: 048

REACTIONS (4)
  - Blood prolactin increased [None]
  - Off label use [None]
  - Product use in unapproved indication [None]
  - Galactorrhoea [Unknown]

NARRATIVE: CASE EVENT DATE: 20200601
